FAERS Safety Report 6759240-9 (Version None)
Quarter: 2010Q2

REPORT INFORMATION
  Report Type: 
  Country: None (occurrence: None)
  Receive Date: 20100607
  Receipt Date: 20100526
  Transmission Date: 20101027
  Serious: Yes (Other)
  Sender: FDA-Public Use
  Company Number: JP-PFIZER INC-2010067735

PATIENT
  Age: 74 Year
  Sex: Male

DRUGS (3)
  1. ALDACTONE [Suspect]
     Indication: OEDEMA
     Dosage: 50 MG, 1X/DAY
     Route: 048
     Dates: start: 20100501
  2. LASIX [Concomitant]
  3. OXYGEN [Concomitant]

REACTIONS (4)
  - DECREASED APPETITE [None]
  - LIVER FUNCTION TEST ABNORMAL [None]
  - OEDEMA [None]
  - RENAL FUNCTION TEST ABNORMAL [None]
